FAERS Safety Report 7896624 (Version 2)
Quarter: 2013Q1

REPORT INFORMATION
  Report Type: Spontaneous
  Country: US (occurrence: US)
  Receive Date: 20110413
  Receipt Date: 20130201
  Transmission Date: 20140127
  Serious: Yes (Other)
  Sender: FDA-Public Use
  Company Number: US-RB-025254-11

PATIENT
  Age: 29 Year
  Sex: Female

DRUGS (2)
  1. SUBOXONE TABLET [Suspect]
     Route: 060
     Dates: start: 201008, end: 201103
  2. SUBOXONE TABLET [Suspect]
     Indication: DRUG DEPENDENCE
     Dosage: TAPERED TO 2 MG AT TIME OF DELIVERY
     Route: 060
     Dates: start: 201103, end: 20110319

REACTIONS (3)
  - Exposure during pregnancy [Recovered/Resolved]
  - Premature labour [Recovered/Resolved]
  - Premature delivery [Recovered/Resolved]
